FAERS Safety Report 4544609-3 (Version None)
Quarter: 2004Q4

REPORT INFORMATION
  Report Type: 
  Country: None (occurrence: None)
  Receive Date: 20041230
  Receipt Date: 20041217
  Transmission Date: 20050328
  Serious: Yes (Hospitalization)
  Sender: FDA-Public Use
  Company Number: 2004114755

PATIENT
  Age: 25 Year
  Sex: Female
  Weight: 108.4097 kg

DRUGS (4)
  1. GEODON [Suspect]
     Indication: ILL-DEFINED DISORDER
  2. CLOZAPINE [Suspect]
     Indication: MAJOR DEPRESSION
     Dosage: 225 MG, ORAL
     Route: 048
     Dates: start: 20041015, end: 20041019
  3. TOPIRAMATE [Concomitant]
  4. BENZTROPINE MESYLATE [Concomitant]

REACTIONS (3)
  - CONDITION AGGRAVATED [None]
  - PSYCHOTIC DISORDER [None]
  - THERAPY NON-RESPONDER [None]
